FAERS Safety Report 7319440-6 (Version None)
Quarter: 2011Q1

REPORT INFORMATION
  Report Type: 
  Country: None (occurrence: None)
  Receive Date: 20110228
  Receipt Date: 20100325
  Transmission Date: 20110831
  Serious: No
  Sender: FDA-Public Use
  Company Number: A0852009A

PATIENT
  Age: 45 Year
  Sex: Female

DRUGS (4)
  1. DEPAKOTE [Concomitant]
  2. LEXAPRO [Concomitant]
  3. LUNESTA [Concomitant]
  4. LAMOTRIGINE [Suspect]
     Indication: BIPOLAR DISORDER
     Dosage: 75MG VARIABLE DOSE
     Route: 048
     Dates: start: 20100131

REACTIONS (6)
  - PERIPHERAL COLDNESS [None]
  - RASH [None]
  - HYPOAESTHESIA [None]
  - DYSGEUSIA [None]
  - FATIGUE [None]
  - TREMOR [None]
